FAERS Safety Report 22858214 (Version 3)
Quarter: 2024Q1

REPORT INFORMATION
  Report Type: Report from Study
  Country: EG (occurrence: EG)
  Receive Date: 20230824
  Receipt Date: 20240112
  Transmission Date: 20240410
  Serious: Yes (Other)
  Sender: FDA-Public Use
  Company Number: EG-SANDOZ-SDZ2023EG016616

PATIENT
  Age: 11 Year
  Sex: Female
  Weight: 36 kg

DRUGS (5)
  1. OMNITROPE [Suspect]
     Active Substance: SOMATROPIN
     Dosage: 1.2 MG, QD
     Route: 058
     Dates: start: 20191110, end: 20240104
  2. OMNITROPE [Suspect]
     Active Substance: SOMATROPIN
     Indication: Growth hormone deficiency
     Dosage: 0.8 THEN INCREASED TO 1MG/DAY DUE TO NORMAL GROWTH, STOPPED SINCE 2-3 WEEKS
     Route: 058
     Dates: start: 20191110
  3. Ferroglobin [Concomitant]
     Indication: Supplementation therapy
     Dosage: 1 SPOONFUL PER DAY
     Route: 048
     Dates: start: 2017
  4. MARVEL [Concomitant]
     Indication: Anaemia
     Dosage: 1 SPOON FROM 1 WEEK
     Route: 048
  5. ZINC [Concomitant]
     Active Substance: PYRITHIONE ZINC\ZINC\ZINC CHLORIDE
     Indication: Supplementation therapy
     Dosage: 1 TABLET/DAY
     Route: 048

REACTIONS (9)
  - Anaemia [Not Recovered/Not Resolved]
  - Rhinitis allergic [Not Recovered/Not Resolved]
  - Injection site pain [Not Recovered/Not Resolved]
  - Expired device used [Unknown]
  - Product dose omission issue [Unknown]
  - Multiple use of single-use product [Unknown]
  - Product storage error [Unknown]
  - Product preparation error [Unknown]
  - Product deposit [Unknown]

NARRATIVE: CASE EVENT DATE: 20211110
